FAERS Safety Report 18726841 (Version 1)
Quarter: 2021Q1

REPORT INFORMATION
  Report Type: Spontaneous
  Country: NL (occurrence: NL)
  Receive Date: 20210112
  Receipt Date: 20210112
  Transmission Date: 20210419
  Serious: Yes (Other)
  Sender: FDA-Public Use
  Company Number: NL-SUN PHARMACEUTICAL INDUSTRIES LTD-2020RR-274956

PATIENT
  Sex: Female

DRUGS (10)
  1. ZOPICLON TABLET 7,5MG / BRAND NAME NOT SPECIFIEDZOPICLON TABLET 7,5MG [Concomitant]
     Indication: PRODUCT USED FOR UNKNOWN INDICATION
     Dosage: TABLET, 7,5 MG (MILLIGRAM) ()
     Route: 065
  2. TRIAMCINOLONACETONIDE CREME 1MG/G / BRAND NAME NOT SPECIFIEDTRIAMCI... [Concomitant]
     Indication: PRODUCT USED FOR UNKNOWN INDICATION
     Dosage: CREME, 1 MG/G (MILLIGRAM PER GRAM)
     Route: 065
  3. ROPINIROL TABLET OMHULD 0,25MG / BRAND NAME NOT SPECIFIEDROPINIROL ... [Concomitant]
     Indication: PRODUCT USED FOR UNKNOWN INDICATION
     Dosage: OMHULDE TABLET, 0,25 MG (MILLIGRAM) ()
     Route: 065
  4. MACROGOL/ZOUTEN PDR V DRANK (MOVIC/MOLAX/LAXT/GEN) / MOVICOLON POED... [Concomitant]
     Indication: PRODUCT USED FOR UNKNOWN INDICATION
     Dosage: POEDER VOOR DRANK ()
     Route: 065
  5. METOPROLOL TABLET   50MG / BRAND NAME NOT SPECIFIEDMETOPROLOL TABLE... [Concomitant]
     Indication: PRODUCT USED FOR UNKNOWN INDICATION
     Dosage: TABLET, 50 MG (MILLIGRAM) ()
     Route: 065
  6. SERTRALINE [Suspect]
     Active Substance: SERTRALINE HYDROCHLORIDE
     Indication: POST-TRAUMATIC STRESS DISORDER
     Dosage: 1X PER DAG 1 TABLET
     Route: 065
     Dates: start: 20201027, end: 20201128
  7. SUMATRIPTAN DISPERTABLET  50MG / BRAND NAME NOT SPECIFIEDSUMATRIPTA... [Concomitant]
     Indication: PRODUCT USED FOR UNKNOWN INDICATION
     Dosage: TABLET, 50 MG (MILLIGRAM) ()
     Route: 065
  8. OXAZEPAM TABLET 10MG / BRAND NAME NOT SPECIFIEDOXAZEPAM TABLET 10MG [Concomitant]
     Indication: PRODUCT USED FOR UNKNOWN INDICATION
     Dosage: TABLET, 10 MG (MILLIGRAM) ()
     Route: 065
  9. VASELINECETOMACROGOL CREME / BRAND NAME NOT SPECIFIEDVASELINECETOMA... [Concomitant]
     Indication: PRODUCT USED FOR UNKNOWN INDICATION
     Dosage: CREME
     Route: 065
  10. HYDROCHLOORTHIAZIDE TABLET 12,5MG / BRAND NAME NOT SPECIFIEDHYDROCH... [Concomitant]
     Indication: PRODUCT USED FOR UNKNOWN INDICATION
     Dosage: TABLET, 12,5 MG (MILLIGRAM) ()
     Route: 065

REACTIONS (1)
  - Petit mal epilepsy [Recovered/Resolved]
